APPROVED DRUG PRODUCT: PENTIDS '800'
Active Ingredient: PENICILLIN G POTASSIUM
Strength: 800,000 UNITS
Dosage Form/Route: TABLET;ORAL
Application: A062155 | Product #004
Applicant: APOTHECON SUB BRISTOL MYERS SQUIBB CO
Approved: Approved Prior to Jan 1, 1982 | RLD: No | RS: No | Type: DISCN